FAERS Safety Report 6603818-X (Version None)
Quarter: 2010Q1

REPORT INFORMATION
  Report Type: 
  Country: None (occurrence: None)
  Receive Date: 20100226
  Receipt Date: 20090210
  Transmission Date: 20100710
  Serious: No
  Sender: FDA-Public Use
  Company Number: A0767970A

PATIENT
  Sex: Female

DRUGS (2)
  1. LAMICTAL CD [Suspect]
     Indication: BIPOLAR DISORDER
     Dosage: 200MG PER DAY
     Route: 048
  2. KLONOPIN [Concomitant]

REACTIONS (5)
  - ACNE [None]
  - RASH [None]
  - RASH PRURITIC [None]
  - SCAB [None]
  - SKIN DISORDER [None]
